FAERS Safety Report 8907375 (Version 1)
Quarter: 2012Q4

REPORT INFORMATION
  Report Type: 
  Country: US (occurrence: US)
  Receive Date: 20121113
  Receipt Date: 20121113
  Transmission Date: 20130627
  Serious: No
  Sender: FDA-Public Use
  Company Number: US-AMGEN-USASP2012010470

PATIENT
  Age: 47 Year
  Sex: Female

DRUGS (6)
  1. ENBREL [Suspect]
     Indication: PRODUCT USED FOR UNKNOWN INDICATION
     Dosage: 50 mg, 2 times/wk
  2. KOMBIGLYZE [Concomitant]
  3. DIOVAN [Concomitant]
     Dosage: 40 mg, UNK
  4. PROZAC [Concomitant]
     Dosage: 10 mg, UNK
  5. CITRACAL + D                       /01438101/ [Concomitant]
     Dosage: UNK
  6. MULTIVITAMIN                       /00097801/ [Concomitant]
     Dosage: UNK

REACTIONS (1)
  - Hepatic enzyme abnormal [Unknown]
